FAERS Safety Report 6254288-5 (Version None)
Quarter: 2009Q3

REPORT INFORMATION
  Report Type: 
  Country: None (occurrence: None)
  Receive Date: 20090701
  Receipt Date: 20090701
  Transmission Date: 20100115
  Serious: Yes (Hospitalization)
  Sender: FDA-Public Use
  Company Number: None

PATIENT
  Age: 72 Year
  Sex: Female

DRUGS (14)
  1. DIGOXIN [Suspect]
     Indication: ATRIAL FIBRILLATION
     Dosage: 0.5MG X1, 0.25MG X2 THEN 0.125M
     Route: 048
     Dates: start: 20090504, end: 20090505
  2. WARFARIN SODIUM [Suspect]
     Indication: ATRIAL FIBRILLATION
     Dosage: 5MG DAILY PO
     Route: 048
  3. DILTIAZEM [Concomitant]
  4. POTASSIUM CHLORIDE [Concomitant]
  5. LASIX [Concomitant]
  6. SYNTHROID [Concomitant]
  7. ALLEGRA [Concomitant]
  8. CELEBREX [Concomitant]
  9. SINGULAIR [Concomitant]
  10. ADVAIR HFA [Concomitant]
  11. NEXIUM [Concomitant]
  12. CALCIUM [Concomitant]
  13. FLONASE [Concomitant]
  14. GLUCOSAMINE [Concomitant]

REACTIONS (11)
  - ASTHENIA [None]
  - ATRIAL FIBRILLATION [None]
  - BLOOD POTASSIUM INCREASED [None]
  - BLOOD PRESSURE DIASTOLIC DECREASED [None]
  - DECREASED APPETITE [None]
  - DRUG INTERACTION [None]
  - DRUG LEVEL INCREASED [None]
  - ELECTROCARDIOGRAM ST SEGMENT DEPRESSION [None]
  - FATIGUE [None]
  - INTERNATIONAL NORMALISED RATIO INCREASED [None]
  - THERAPEUTIC AGENT TOXICITY [None]
